FAERS Safety Report 21101102 (Version 4)
Quarter: 2022Q3

REPORT INFORMATION
  Report Type: Report from Study
  Country: US (occurrence: US)
  Receive Date: 20220719
  Receipt Date: 20220901
  Transmission Date: 20221026
  Serious: Yes (Other)
  Sender: FDA-Public Use
  Company Number: US-TAKEDA-2022TUS033592

PATIENT
  Sex: Female
  Weight: 55 kg

DRUGS (18)
  1. HUMAN IMMUNOGLOBULIN G [Suspect]
     Active Substance: HUMAN IMMUNOGLOBULIN G
     Indication: Immunodeficiency common variable
     Dosage: 30 GRAM, Q4WEEKS
     Route: 042
     Dates: start: 20220405
  2. HUMAN IMMUNOGLOBULIN G [Suspect]
     Active Substance: HUMAN IMMUNOGLOBULIN G
     Dosage: 35 GRAM, Q4WEEKS
     Route: 042
     Dates: start: 20220405
  3. ACETAMINOPHEN [Concomitant]
     Active Substance: ACETAMINOPHEN
  4. DIPHENHYDRAMINE [Concomitant]
     Active Substance: DIPHENHYDRAMINE
  5. SODIUM CHLORIDE [Concomitant]
     Active Substance: SODIUM CHLORIDE
  6. EPINEPHRINE [Concomitant]
     Active Substance: EPINEPHRINE
  7. Lmx [Concomitant]
  8. AZASITE [Concomitant]
     Active Substance: AZITHROMYCIN MONOHYDRATE
  9. REFRESH P.M. [Concomitant]
     Active Substance: MINERAL OIL\PETROLATUM
  10. REFRESH LIQUIGEL [Concomitant]
     Active Substance: CARBOXYMETHYLCELLULOSE SODIUM
  11. TRAVATAN [Concomitant]
     Active Substance: TRAVOPROST
  12. BACITRACIN [Concomitant]
     Active Substance: BACITRACIN
  13. MECLIZINE HYDROCHLORIDE [Concomitant]
     Active Substance: MECLIZINE HYDROCHLORIDE
  14. BUPROPION [Concomitant]
     Active Substance: BUPROPION
  15. LOTEMAX [Concomitant]
     Active Substance: LOTEPREDNOL ETABONATE
  16. BESIVANCE [Concomitant]
     Active Substance: BESIFLOXACIN
  17. OMEPRAZOLE [Concomitant]
     Active Substance: OMEPRAZOLE
  18. TRAVATAN Z [Concomitant]
     Active Substance: TRAVOPROST

REACTIONS (8)
  - Eye infection fungal [Unknown]
  - Eye infection [Unknown]
  - Eye infection viral [Unknown]
  - Retinal disorder [Unknown]
  - Herpes zoster [Unknown]
  - Infusion site haematoma [Unknown]
  - Infusion site discomfort [Unknown]
  - Headache [Unknown]
